FAERS Safety Report 11822608 (Version 2)
Quarter: 2016Q2

REPORT INFORMATION
  Report Type: Spontaneous
  Country: US (occurrence: US)
  Receive Date: 20151210
  Receipt Date: 20160413
  Transmission Date: 20160815
  Serious: No
  Sender: FDA-Public Use
  Company Number: US-JNJFOC-20150603857

PATIENT
  Age: 85 Year
  Sex: Female

DRUGS (19)
  1. PEPCID [Concomitant]
     Active Substance: FAMOTIDINE
  2. LISINOPRIL. [Concomitant]
     Active Substance: LISINOPRIL
  3. K TAB [Concomitant]
  4. FAMOTIDINE. [Concomitant]
     Active Substance: FAMOTIDINE
  5. UBIQUINOL [Concomitant]
     Active Substance: UBIQUINOL
  6. IMBRUVICA [Suspect]
     Active Substance: IBRUTINIB
     Indication: CHRONIC LYMPHOCYTIC LEUKAEMIA
     Route: 048
     Dates: start: 20140508
  7. PRANDIN [Concomitant]
     Active Substance: REPAGLINIDE
  8. CHROMIUM PICOLINATE [Concomitant]
     Active Substance: CHROMIUM PICOLINATE
  9. BABY ASPIRIN [Concomitant]
     Active Substance: ASPIRIN
  10. ATENOLOL. [Concomitant]
     Active Substance: ATENOLOL
  11. VITAMIN C [Concomitant]
     Active Substance: ASCORBIC ACID
  12. OMEGA 3 FISH OIL [Concomitant]
     Active Substance: FISH OIL\OMEGA-3 FATTY ACIDS
  13. ALLOPURINOL. [Concomitant]
     Active Substance: ALLOPURINOL
  14. AMLODIPINE [Concomitant]
     Active Substance: AMLODIPINE BESYLATE
  15. CELEXA [Concomitant]
     Active Substance: CITALOPRAM HYDROBROMIDE
  16. IRON [Concomitant]
     Active Substance: IRON
  17. TURMERIC [Concomitant]
     Active Substance: TURMERIC
  18. PRAVACHOL [Concomitant]
     Active Substance: PRAVASTATIN SODIUM
  19. INSULIN [Concomitant]
     Active Substance: INSULIN NOS

REACTIONS (3)
  - Tremor [Not Recovered/Not Resolved]
  - Disorientation [Not Recovered/Not Resolved]
  - Asthenia [Unknown]

NARRATIVE: CASE EVENT DATE: 20150514
